FAERS Safety Report 7621050-8 (Version None)
Quarter: 2011Q3

REPORT INFORMATION
  Report Type: 
  Country: None (occurrence: None)
  Receive Date: 20110719
  Receipt Date: 20101129
  Transmission Date: 20111222
  Serious: No
  Sender: FDA-Public Use
  Company Number: US-KINGPHARMUSA00001-K201001448

PATIENT
  Sex: Female

DRUGS (3)
  1. LEVOXYL [Suspect]
     Dosage: 50 MCG, QD
     Route: 048
     Dates: start: 20101001
  2. HERBS [Concomitant]
  3. LEVOXYL [Suspect]
     Indication: HYPOTHYROIDISM
     Dosage: 75 MCG, QD
     Route: 048
     Dates: end: 20101001

REACTIONS (5)
  - DRUG INEFFECTIVE [None]
  - WEIGHT INCREASED [None]
  - DRUG INTOLERANCE [None]
  - THYROID FUNCTION TEST ABNORMAL [None]
  - ABDOMINAL DISTENSION [None]
